FAERS Safety Report 20938474 (Version 1)
Quarter: 2022Q2

REPORT INFORMATION
  Report Type: Report from Study
  Country: US (occurrence: None)
  Receive Date: 20220609
  Receipt Date: 20220609
  Transmission Date: 20220721
  Serious: Yes (Hospitalization)
  Sender: FDA-Public Use
  Company Number: US-ROCHE-3111350

PATIENT

DRUGS (1)
  1. RITUXIMAB [Suspect]
     Active Substance: RITUXIMAB
     Indication: B-cell lymphoma recurrent
     Dosage: DATE OF LAST DOSE PRIOR TO EVENT: 12/MAY/2022
     Route: 041

REACTIONS (1)
  - Atrial tachycardia [Unknown]

NARRATIVE: CASE EVENT DATE: 20220523
